FAERS Safety Report 22373014 (Version 1)
Quarter: 2023Q2

REPORT INFORMATION
  Report Type: Spontaneous
  Country: US (occurrence: None)
  Receive Date: 20230525
  Receipt Date: 20230525
  Transmission Date: 20230722
  Serious: Yes (Disabling)
  Sender: FDA-Public Use
  Company Number: None

PATIENT
  Age: 46 Year
  Sex: Female
  Weight: 74.25 kg

DRUGS (12)
  1. TOPIRAMATE [Suspect]
     Active Substance: TOPIRAMATE
     Indication: Migraine
     Dosage: OTHER QUANTITY : 1 TABLET(S);?FREQUENCY : TWICE A DAY;?
     Route: 048
     Dates: start: 20230120, end: 20230131
  2. GABAPENTIN [Concomitant]
     Active Substance: GABAPENTIN
  3. HYDROXYZINE [Concomitant]
     Active Substance: HYDROXYZINE HYDROCHLORIDE
  4. FAMOTIDINE [Concomitant]
     Active Substance: FAMOTIDINE
  5. OMEPRAZOLE [Concomitant]
     Active Substance: OMEPRAZOLE
  6. BENZONATATE [Concomitant]
     Active Substance: BENZONATATE
  7. UMECLIDINIUM BROMIDE\VILANTEROL TRIFENATATE [Concomitant]
     Active Substance: UMECLIDINIUM BROMIDE\VILANTEROL TRIFENATATE
  8. albuterol [Concomitant]
  9. MYRBETRIQ [Concomitant]
     Active Substance: MIRABEGRON
  10. TRIAMCINOLONE [Concomitant]
     Active Substance: TRIAMCINOLONE
  11. IBUPROFEN [Concomitant]
     Active Substance: IBUPROFEN
  12. clotromizole cream [Concomitant]

REACTIONS (11)
  - Somnolence [None]
  - Sleep disorder [None]
  - Balance disorder [None]
  - Dizziness [None]
  - Hypoaesthesia [None]
  - Fatigue [None]
  - Cough [None]
  - Nasal congestion [None]
  - Upper-airway cough syndrome [None]
  - Chest pain [None]
  - Bedridden [None]

NARRATIVE: CASE EVENT DATE: 20230120
